FAERS Safety Report 20129897 (Version 1)
Quarter: 2021Q4

REPORT INFORMATION
  Report Type: Spontaneous
  Country: CN (occurrence: CN)
  Receive Date: 20211130
  Receipt Date: 20211130
  Transmission Date: 20220303
  Serious: Yes (Hospitalization)
  Sender: FDA-Public Use
  Company Number: CN-LUPIN PHARMACEUTICALS INC.-2021-23350

PATIENT
  Age: 58 Year
  Sex: Male

DRUGS (2)
  1. METHYLPREDNISOLONE [Suspect]
     Active Substance: METHYLPREDNISOLONE
     Indication: Interstitial lung disease
     Dosage: 40 MILLIGRAM, QD
     Route: 065
     Dates: start: 2019
  2. AFATINIB [Concomitant]
     Active Substance: AFATINIB
     Indication: Lung adenocarcinoma stage IV
     Dosage: 40 MILLIGRAM, QD
     Route: 048
     Dates: start: 20190727

REACTIONS (1)
  - Drug ineffective [Unknown]

NARRATIVE: CASE EVENT DATE: 20190101
